FAERS Safety Report 15600608 (Version 3)
Quarter: 2018Q4

REPORT INFORMATION
  Report Type: Spontaneous
  Country: ES (occurrence: ES)
  Receive Date: 20181109
  Receipt Date: 20181121
  Transmission Date: 20190205
  Serious: Yes (Death, Hospitalization, Other)
  Sender: FDA-Public Use
  Company Number: ES-TEVA-2018-ES-973377

PATIENT
  Age: 35 Year
  Sex: Female

DRUGS (7)
  1. LEVACT [Suspect]
     Active Substance: BENDAMUSTINE HYDROCHLORIDE
     Indication: HODGKIN^S DISEASE
     Route: 042
  2. LEVACT [Suspect]
     Active Substance: BENDAMUSTINE HYDROCHLORIDE
     Dosage: 2.5 MG/ML POWDER FOR CONCENTRATE FOR SOLUTION FOR INFUSION, 5 VIALS OF 100 MG
     Route: 042
     Dates: start: 20120820
  3. LEVACT [Suspect]
     Active Substance: BENDAMUSTINE HYDROCHLORIDE
     Dosage: 2.5 MG/ML POWDER FOR CONCENTRATE FOR SOLUTION FOR INFUSION, 5 VIALS OF 100 MG, CYCLIC
     Route: 042
     Dates: start: 20120723
  4. LENALIDOMIDE [Concomitant]
     Active Substance: LENALIDOMIDE
     Indication: HODGKIN^S DISEASE
     Dosage: 20 MG, UNKNOWN FREQ. (FOR 3 OF EVERY 4 WEEKS).
     Route: 065
     Dates: start: 201408, end: 201501
  5. CELECOXIB. [Suspect]
     Active Substance: CELECOXIB
     Route: 065
     Dates: end: 201603
  6. CELECOXIB. [Suspect]
     Active Substance: CELECOXIB
     Route: 065
  7. CELECOXIB. [Suspect]
     Active Substance: CELECOXIB
     Indication: HODGKIN^S DISEASE
     Route: 065
     Dates: start: 201408, end: 201501

REACTIONS (5)
  - Disease progression [Unknown]
  - Anaemia [Unknown]
  - Sepsis [Fatal]
  - Gastrointestinal haemorrhage [Unknown]
  - Product use in unapproved indication [Unknown]

NARRATIVE: CASE EVENT DATE: 201603
